FAERS Safety Report 25501491 (Version 6)
Quarter: 2025Q4

REPORT INFORMATION
  Report Type: Spontaneous
  Country: US (occurrence: US)
  Receive Date: 20250701
  Receipt Date: 20251216
  Transmission Date: 20260117
  Serious: No
  Sender: MERCK SHARP & DOHME LLC
  Company Number: US-009507513-2294882

PATIENT
  Sex: Female
  Weight: 66.7 kg

DRUGS (33)
  1. SOTATERCEPT [Suspect]
     Active Substance: SOTATERCEPT
     Indication: Product used for unknown indication
     Dates: start: 20250521
  2. SOTATERCEPT [Suspect]
     Active Substance: SOTATERCEPT
     Dates: start: 2025
  3. SOTATERCEPT [Suspect]
     Active Substance: SOTATERCEPT
     Dates: start: 20250612, end: 20250612
  4. SOTATERCEPT [Suspect]
     Active Substance: SOTATERCEPT
     Dates: start: 20250814, end: 20250814
  5. TYVASO [Suspect]
     Active Substance: TREPROSTINIL
     Indication: Pulmonary arterial hypertension
     Route: 055
     Dates: start: 2025, end: 2025
  6. TYVASO [Suspect]
     Active Substance: TREPROSTINIL
     Indication: Pulmonary arterial hypertension
     Dosage: 80 UG, QID (48 UG+32 UG)
     Route: 055
     Dates: start: 2025
  7. TYVASO [Suspect]
     Active Substance: TREPROSTINIL
     Indication: Pulmonary arterial hypertension
     Dosage: 80 UG, QID (48 UG+32 UG)
     Route: 055
     Dates: start: 20250116
  8. TYVASO [Suspect]
     Active Substance: TREPROSTINIL
     Indication: Pulmonary arterial hypertension
     Dosage: 48UG, QID
     Route: 055
     Dates: start: 2025, end: 2025
  9. TYVASO [Suspect]
     Active Substance: TREPROSTINIL
     Indication: Pulmonary arterial hypertension
     Dosage: 80 UG, QID (48 UG+32 UG)
     Route: 055
     Dates: start: 20251027
  10. OXYGEN [Concomitant]
     Active Substance: OXYGEN
  11. LUTEIN-ZEAXANTHIN [Concomitant]
  12. FUROSEMIDE [Concomitant]
     Active Substance: FUROSEMIDE
  13. ESTRACE [Concomitant]
     Active Substance: ESTRADIOL
  14. DIGOXIN [Concomitant]
     Active Substance: DIGOXIN
  15. VALACYCLOVIR [Concomitant]
     Active Substance: VALACYCLOVIR HYDROCHLORIDE
  16. Ponaris [Concomitant]
  17. KETOPROFEN [Concomitant]
     Active Substance: KETOPROFEN
  18. OCUVITE [Concomitant]
     Active Substance: VITAMINS
  19. TUMS [Concomitant]
     Active Substance: CALCIUM CARBONATE
  20. FOLIC ACID [Concomitant]
     Active Substance: FOLIC ACID
  21. POTASSIUM CHLORIDE [Concomitant]
     Active Substance: POTASSIUM CHLORIDE
  22. MECLIZINE [Concomitant]
     Active Substance: MECLIZINE HYDROCHLORIDE
     Route: 048
  23. PANTOPRAZOLE SODIUM [Concomitant]
     Active Substance: PANTOPRAZOLE SODIUM
  24. LYRICA [Concomitant]
     Active Substance: PREGABALIN
  25. ASMANEX HFA [Concomitant]
     Active Substance: MOMETASONE FUROATE
  26. IRON [Concomitant]
     Active Substance: IRON
  27. AFRIN [Concomitant]
     Active Substance: OXYMETAZOLINE HYDROCHLORIDE
  28. BENZONATATE [Concomitant]
     Active Substance: BENZONATATE
  29. VITAMINS [Concomitant]
     Active Substance: VITAMINS
  30. OPSUMIT [Concomitant]
     Active Substance: MACITENTAN
  31. VITAMIN D3 [Concomitant]
     Active Substance: CHOLECALCIFEROL
  32. MUPIROCIN [Concomitant]
     Active Substance: MUPIROCIN
  33. ADCIRCA [Concomitant]
     Active Substance: TADALAFIL

REACTIONS (11)
  - Psoriasis [Unknown]
  - Neck pain [Unknown]
  - Asthenia [Unknown]
  - Pain in jaw [Recovered/Resolved]
  - Diarrhoea [Unknown]
  - Back pain [Unknown]
  - Fatigue [Recovered/Resolved]
  - Headache [Recovered/Resolved]
  - Inappropriate schedule of product administration [Unknown]
  - Flatulence [Recovered/Resolved]
  - Herpes zoster [Unknown]

NARRATIVE: CASE EVENT DATE: 20250101
